FAERS Safety Report 25211007 (Version 2)
Quarter: 2025Q3

REPORT INFORMATION
  Report Type: Spontaneous
  Country: US (occurrence: US)
  Receive Date: 20250417
  Receipt Date: 20250820
  Transmission Date: 20251020
  Serious: No
  Sender: INSUD PHARMA
  Company Number: US-INSUD PHARMA-2504US02638

PATIENT

DRUGS (1)
  1. SLYND [Suspect]
     Active Substance: DROSPIRENONE
     Indication: Menstruation irregular
     Route: 048
     Dates: start: 20250318, end: 202505

REACTIONS (7)
  - Hyperhidrosis [Recovered/Resolved]
  - Seborrhoea [Recovered/Resolved]
  - Acne [Recovered/Resolved]
  - Loss of libido [Recovered/Resolved]
  - Vulvovaginal dryness [Recovered/Resolved]
  - Intermenstrual bleeding [Recovered/Resolved]
  - Product use in unapproved indication [Unknown]

NARRATIVE: CASE EVENT DATE: 20250301
